FAERS Safety Report 12627176 (Version 1)
Quarter: 2016Q3

REPORT INFORMATION
  Report Type: Spontaneous
  Country: US (occurrence: US)
  Receive Date: 20160805
  Receipt Date: 20160805
  Transmission Date: 20161109
  Serious: Yes (Other)
  Sender: FDA-Public Use
  Company Number: US-SYNEX-2008S1000073

PATIENT
  Age: 43 Year
  Sex: Female
  Weight: 60 kg

DRUGS (1)
  1. NITRIC OXIDE. [Suspect]
     Active Substance: NITRIC OXIDE
     Indication: PULMONARY HYPERTENSION
     Dosage: 10 PPM, CONTINUOUS
     Dates: start: 20080422, end: 20080429

REACTIONS (3)
  - Oxygen saturation decreased [Unknown]
  - Device failure [Unknown]
  - Barotrauma [Unknown]

NARRATIVE: CASE EVENT DATE: 20080428
